FAERS Safety Report 22956996 (Version 3)
Quarter: 2024Q3

REPORT INFORMATION
  Report Type: Report from Study
  Country: GB (occurrence: GB)
  Receive Date: 20230919
  Receipt Date: 20240919
  Transmission Date: 20241017
  Serious: Yes (Hospitalization, Other)
  Sender: SANDOZ
  Company Number: GB-SANDOZ-SDZ2023GB029867

PATIENT
  Sex: Female

DRUGS (2)
  1. HYRIMOZ [Suspect]
     Active Substance: ADALIMUMAB-ADAZ
     Indication: Crohn^s disease
     Dosage: 40 MG, QW (40 MG/0.8 ML)
     Route: 058
  2. HYRIMOZ [Suspect]
     Active Substance: ADALIMUMAB-ADAZ
     Dosage: 40 MG, QW (40MG/0.4ML)
     Route: 058
     Dates: start: 20240708

REACTIONS (4)
  - Femur fracture [Not Recovered/Not Resolved]
  - Angina pectoris [Unknown]
  - Crohn^s disease [Unknown]
  - Product dose omission issue [Unknown]
